FAERS Safety Report 12936986 (Version 1)
Quarter: 2016Q4

REPORT INFORMATION
  Report Type: Spontaneous
  Country: US (occurrence: US)
  Receive Date: 20161114
  Receipt Date: 20161114
  Transmission Date: 20170207
  Serious: Yes (Other)
  Sender: FDA-Public Use
  Company Number: US-PFIZER INC-2016521393

PATIENT
  Sex: Female

DRUGS (1)
  1. XELJANZ XR [Suspect]
     Active Substance: TOFACITINIB CITRATE
     Dosage: 11 MG, UNK

REACTIONS (14)
  - Musculoskeletal stiffness [Unknown]
  - Poor quality sleep [Unknown]
  - Synovitis [Unknown]
  - Joint warmth [Unknown]
  - Meniscus injury [Unknown]
  - Skin hyperpigmentation [Unknown]
  - Dry mouth [Unknown]
  - Joint swelling [Unknown]
  - Fall [Unknown]
  - Depression [Unknown]
  - Pallor [Unknown]
  - Joint effusion [Unknown]
  - Pain in extremity [Unknown]
  - Arthralgia [Unknown]
